FAERS Safety Report 6817000-4 (Version None)
Quarter: 2010Q3

REPORT INFORMATION
  Report Type: 
  Country: None (occurrence: None)
  Receive Date: 20100706
  Receipt Date: 20100624
  Transmission Date: 20110219
  Serious: Yes (Hospitalization)
  Sender: FDA-Public Use
  Company Number: PHHY2010JP33084

PATIENT
  Sex: Female
  Weight: 62 kg

DRUGS (6)
  1. TEGRETOL [Suspect]
     Indication: FIBROMYALGIA
     Dosage: 200 MG DAILY
     Route: 048
     Dates: start: 20100212, end: 20100323
  2. GABAPENTIN [Interacting]
     Indication: FIBROMYALGIA
     Dosage: 600 MG DAILY
     Route: 048
     Dates: start: 20100226, end: 20100226
  3. GABAPENTIN [Interacting]
     Dosage: 1200 MG DAILY
     Route: 048
     Dates: start: 20100227, end: 20100313
  4. NEUROTROPIN [Concomitant]
     Indication: FIBROMYALGIA
     Dosage: 8 IU, UNK
     Route: 048
     Dates: start: 20100212
  5. AMITRIPTYLINE HCL [Concomitant]
     Indication: FIBROMYALGIA
     Dosage: 50 MG, UNK
     Dates: start: 20100212
  6. SYAKUYAKUKANZOTO [Concomitant]
     Indication: FIBROMYALGIA
     Dosage: 7.5 G, UNK
     Route: 048
     Dates: start: 20100212

REACTIONS (9)
  - C-REACTIVE PROTEIN INCREASED [None]
  - DRUG INTERACTION [None]
  - EOSINOPHIL COUNT INCREASED [None]
  - GAMMA-GLUTAMYLTRANSFERASE INCREASED [None]
  - GENERALISED ERYTHEMA [None]
  - HYPOPHAGIA [None]
  - LYMPHOCYTE STIMULATION TEST POSITIVE [None]
  - PRURITUS [None]
  - RASH [None]
